FAERS Safety Report 15740610 (Version 1)
Quarter: 2018Q4

REPORT INFORMATION
  Report Type: Spontaneous
  Country: US (occurrence: US)
  Receive Date: 20181204
  Receipt Date: 20181204
  Transmission Date: 20190205
  Serious: No
  Sender: FDA-Public Use
  Company Number: None

PATIENT
  Age: 58 Year
  Sex: Female

DRUGS (1)
  1. GLATIRAMER PFS INJ (12/BOX) [Suspect]
     Active Substance: GLATIRAMER
     Dates: start: 20180528

REACTIONS (3)
  - Fall [None]
  - Hip fracture [None]
  - Ankle fracture [None]

NARRATIVE: CASE EVENT DATE: 20181119
